FAERS Safety Report 16067192 (Version 1)
Quarter: 2019Q1

REPORT INFORMATION
  Report Type: Spontaneous
  Country: GB (occurrence: GB)
  Receive Date: 20190313
  Receipt Date: 20190313
  Transmission Date: 20190418
  Serious: Yes (Other)
  Sender: FDA-Public Use
  Company Number: GB-MYLANLABS-2019M1023050

PATIENT
  Age: 59 Year
  Sex: Male
  Weight: 85 kg

DRUGS (9)
  1. ALENDRONATE [Suspect]
     Active Substance: ALENDRONATE SODIUM
     Indication: OSTEOPOROSIS PROPHYLAXIS
     Dosage: 70 MILLIGRAM, QW
     Route: 048
     Dates: start: 201706, end: 201801
  2. RITUXIMAB. [Concomitant]
     Active Substance: RITUXIMAB
     Indication: OSTEOPOROSIS PROPHYLAXIS
     Dosage: ALENDRONIC ACID USED AS AN ADJUNCT
  3. ETODOLAC. [Concomitant]
     Active Substance: ETODOLAC
     Dosage: UNK
  4. PREDNISOLONE. [Concomitant]
     Active Substance: PREDNISOLONE
     Indication: OSTEOPOROSIS PROPHYLAXIS
     Dosage: ALENDRONIC ACID USED AS AN ADJUNCT
  5. FOLIC ACID. [Concomitant]
     Active Substance: FOLIC ACID
  6. METHOTREXATE. [Concomitant]
     Active Substance: METHOTREXATE
     Indication: OSTEOPOROSIS PROPHYLAXIS
     Dosage: UNK,ALENDRONIC ACID USED AS AN ADJUNCT
  7. BISOPROLOL [Concomitant]
     Active Substance: BISOPROLOL
     Dosage: UNK
  8. LANSOPRAZOLE. [Concomitant]
     Active Substance: LANSOPRAZOLE
     Dosage: UNK
  9. CALCIUM VITAMIN D3 [Concomitant]
     Indication: SUPPLEMENTATION THERAPY
     Dosage: UNK

REACTIONS (2)
  - Pain in jaw [Unknown]
  - Tooth loss [Not Recovered/Not Resolved]

NARRATIVE: CASE EVENT DATE: 201801
